FAERS Safety Report 10523913 (Version 2)
Quarter: 2015Q1

REPORT INFORMATION
  Report Type: Spontaneous
  Country: US (occurrence: US)
  Receive Date: 20141017
  Receipt Date: 20150115
  Transmission Date: 20150720
  Serious: No
  Sender: FDA-Public Use
  Company Number: US-009507513-1409USA010198

PATIENT
  Age: 35 Year
  Sex: Female

DRUGS (1)
  1. IMPLANON [Suspect]
     Active Substance: ETONOGESTREL
     Indication: CONTRACEPTION
     Dosage: JUST UNDER SKIN IN ARM
     Route: 059
     Dates: start: 20140115

REACTIONS (5)
  - Device difficult to use [Unknown]
  - Device difficult to use [Unknown]
  - Device deployment issue [Not Recovered/Not Resolved]
  - Menometrorrhagia [Not Recovered/Not Resolved]
  - Medical device complication [Unknown]

NARRATIVE: CASE EVENT DATE: 20140326
